FAERS Safety Report 8165283-3 (Version None)
Quarter: 2012Q1

REPORT INFORMATION
  Report Type: 
  Country: None (occurrence: None)
  Receive Date: 20120222
  Receipt Date: 20120222
  Transmission Date: 20120608
  Serious: Yes (Hospitalization, Other)
  Sender: FDA-Public Use
  Company Number: None

PATIENT
  Sex: Female
  Weight: 56 kg

DRUGS (1)
  1. BACTRIM [Suspect]
     Indication: URINARY TRACT INFECTION
     Dates: start: 20120110, end: 20120119

REACTIONS (9)
  - CHROMATURIA [None]
  - VOMITING [None]
  - WEIGHT DECREASED [None]
  - OCULAR ICTERUS [None]
  - JAUNDICE [None]
  - NAUSEA [None]
  - FATIGUE [None]
  - SLEEP DISORDER [None]
  - PRURITUS [None]
